FAERS Safety Report 5352358-7 (Version None)
Quarter: 2007Q2

REPORT INFORMATION
  Report Type: 
  Country: None (occurrence: None)
  Receive Date: 20070607
  Receipt Date: 20070604
  Transmission Date: 20071010
  Serious: Yes (Death)
  Sender: FDA-Public Use
  Company Number: 114-C5013-07051526

PATIENT
  Age: 54 Year
  Sex: Female
  Weight: 75 kg

DRUGS (11)
  1. CC-5013 (LENALIDOMIDE) (CAPSULES) [Suspect]
     Indication: MULTIPLE MYELOMA
     Dosage: 25 MG, 1 IN 1 D, ORAL
     Route: 048
     Dates: start: 20070404, end: 20070416
  2. DEXAMETHASONE TAB [Concomitant]
  3. PREDNISONE TAB [Concomitant]
  4. VALGANCICLOVIR HCL [Concomitant]
  5. GLICLAZIDE (GLICLAZIDE) [Concomitant]
  6. PANTOZOL (PANTOPRAZOLE SODIUM) [Concomitant]
  7. FENTANYL [Concomitant]
  8. MIXTARD (INITARD) [Concomitant]
  9. ACTRAPID (INSULIN) [Concomitant]
  10. AMLODIPINE [Concomitant]
  11. BACTRIM [Concomitant]

REACTIONS (2)
  - PNEUMONIA [None]
  - RESPIRATORY FAILURE [None]
